FAERS Safety Report 25657760 (Version 1)
Quarter: 2025Q3

REPORT INFORMATION
  Report Type: Spontaneous
  Country: US (occurrence: US)
  Receive Date: 20250808
  Receipt Date: 20250808
  Transmission Date: 20251020
  Serious: No
  Sender: RANBAXY
  Company Number: US-SUN PHARMACEUTICAL INDUSTRIES LTD-2025R1-501554

PATIENT
  Sex: Male

DRUGS (2)
  1. ODOMZO [Suspect]
     Active Substance: SONIDEGIB
     Indication: Basal cell carcinoma
     Dosage: 200 MILLIGRAM, QD
     Route: 048
     Dates: start: 20250213
  2. ODOMZO [Suspect]
     Active Substance: SONIDEGIB
     Dosage: 200 MILLIGRAM, QD
     Route: 048
     Dates: start: 20250213, end: 20250422

REACTIONS (3)
  - Product dose omission issue [Unknown]
  - Weight decreased [Unknown]
  - Nausea [Unknown]
